FAERS Safety Report 7884801-3 (Version None)
Quarter: 2011Q4

REPORT INFORMATION
  Report Type: 
  Country: None (occurrence: None)
  Receive Date: 20111102
  Receipt Date: 20111024
  Transmission Date: 20120403
  Serious: Yes (Other)
  Sender: FDA-Public Use
  Company Number: PHHY2011GB94852

PATIENT
  Age: 29 Year
  Sex: Female

DRUGS (3)
  1. HYDRALAZINE HCL [Suspect]
  2. NIFEDIPINE [Suspect]
  3. FUROSEMIDE [Suspect]

REACTIONS (3)
  - FOETAL CHROMOSOME ABNORMALITY [None]
  - MATERNAL EXPOSURE DURING PREGNANCY [None]
  - RENAL IMPAIRMENT [None]
